FAERS Safety Report 16947029 (Version 4)
Quarter: 2020Q3

REPORT INFORMATION
  Report Type: Spontaneous
  Country: US (occurrence: US)
  Receive Date: 20191022
  Receipt Date: 20200817
  Transmission Date: 20201102
  Serious: Yes (Other)
  Sender: FDA-Public Use
  Company Number: US-PFIZER INC-2019454587

PATIENT
  Age: 64 Year
  Sex: Female

DRUGS (1)
  1. XELJANZ XR [Suspect]
     Active Substance: TOFACITINIB CITRATE
     Dosage: 11 MG

REACTIONS (6)
  - Condition aggravated [Unknown]
  - Rheumatoid arthritis [Unknown]
  - Gait inability [Unknown]
  - Illness [Unknown]
  - Impaired driving ability [Unknown]
  - Crohn^s disease [Unknown]
